FAERS Safety Report 8900503 (Version 1)
Quarter: 2012Q4

REPORT INFORMATION
  Report Type: 
  Country: AT (occurrence: AT)
  Receive Date: 20121109
  Receipt Date: 20121109
  Transmission Date: 20130627
  Serious: Yes (Death, Other)
  Sender: FDA-Public Use
  Company Number: AT-CELGENEUS-009-20785-10070158

PATIENT

DRUGS (8)
  1. THALIDOMIDE [Suspect]
     Indication: MULTIPLE MYELOMA
     Dosage: 100 Milligram
     Route: 048
  2. BORTEZOMIB [Suspect]
     Indication: MULTIPLE MYELOMA
     Route: 065
  3. DEXAMETHASONE [Suspect]
     Indication: MULTIPLE MYELOMA
     Route: 065
  4. CYCLOPHOSPHAMID [Suspect]
     Indication: MULTIPLE MYELOMA
     Route: 041
  5. BISPHOSPHONATES [Concomitant]
     Indication: PROPHYLAXIS
     Route: 065
  6. ANTI-BACTERIAL [Concomitant]
     Indication: INFECTION PROPHYLAXIS
     Route: 065
  7. ANTI-EMETIC [Concomitant]
     Indication: NAUSEA PROPHYLAXIS
     Route: 065
  8. ANTI-VIRAL [Concomitant]
     Indication: ANTIVIRAL PROPHYLAXIS
     Route: 065

REACTIONS (21)
  - Cardio-respiratory arrest [Fatal]
  - Multi-organ failure [Fatal]
  - Sepsis [Fatal]
  - Pneumonia [Fatal]
  - Plasma cell myeloma [Fatal]
  - Deep vein thrombosis [Unknown]
  - Leukopenia [Unknown]
  - Infection [Unknown]
  - Constipation [Unknown]
  - Neuropathy peripheral [Unknown]
  - Thrombocytopenia [Unknown]
  - Neutropenia [Unknown]
  - Lymphopenia [Unknown]
  - Oedema peripheral [Unknown]
  - Anaemia [Unknown]
  - Paraesthesia [Unknown]
  - Pyrexia [Unknown]
  - Asthenia [Unknown]
  - Herpes zoster [Unknown]
  - Musculoskeletal pain [Unknown]
  - Fatigue [Unknown]
